FAERS Safety Report 6654159-6 (Version None)
Quarter: 2010Q1

REPORT INFORMATION
  Report Type: 
  Country: None (occurrence: None)
  Receive Date: 20100326
  Receipt Date: 20100316
  Transmission Date: 20100710
  Serious: Yes (Other)
  Sender: FDA-Public Use
  Company Number: FR-PFIZER INC-2006083819

PATIENT
  Age: 74 Year
  Sex: Female
  Weight: 57 kg

DRUGS (11)
  1. SUNITINIB MALATE [Suspect]
     Indication: RENAL CANCER
     Dosage: 25 MG, 1X/DAY
     Route: 048
     Dates: start: 20051031, end: 20060501
  2. SUNITINIB MALATE [Suspect]
     Dosage: 25 MG, 1X/DAY
     Route: 048
     Dates: start: 20060612
  3. FUROSEMIDE [Concomitant]
     Dosage: UNK
     Route: 048
     Dates: start: 20010101
  4. ENDOTELON [Concomitant]
     Route: 048
  5. LANSOPRAZOLE [Concomitant]
     Route: 048
  6. BROMAZEPAM [Concomitant]
     Route: 048
     Dates: start: 20051128
  7. ZOLEDRONIC ACID [Concomitant]
     Route: 058
     Dates: start: 20050913
  8. PARACETAMOL [Concomitant]
     Route: 048
     Dates: start: 20051031
  9. DICLOFENAC [Concomitant]
     Route: 048
     Dates: start: 20051114
  10. MACROGOL [Concomitant]
     Route: 048
     Dates: start: 20060623
  11. LIDOCAINE AND EPINEPHRINE [Concomitant]
     Route: 058
     Dates: start: 20060511, end: 20060511

REACTIONS (2)
  - BASAL CELL CARCINOMA [None]
  - NEOPLASM MALIGNANT [None]
